FAERS Safety Report 7689003-1 (Version None)
Quarter: 2011Q3

REPORT INFORMATION
  Report Type: 
  Country: None (occurrence: None)
  Receive Date: 20110817
  Receipt Date: 20110815
  Transmission Date: 20111222
  Serious: Yes (Death)
  Sender: FDA-Public Use
  Company Number: PHEH2011US01599

PATIENT
  Sex: Female
  Weight: 65.91 kg

DRUGS (1)
  1. EXJADE [Suspect]
     Indication: BLOOD DISORDER
     Dosage: 1250 MG, DAILY
     Route: 048
     Dates: start: 20080310, end: 20110708

REACTIONS (1)
  - DEATH [None]
